FAERS Safety Report 4310062-8 (Version None)
Quarter: 2004Q1

REPORT INFORMATION
  Report Type: 
  Country: None (occurrence: None)
  Receive Date: 20040301
  Receipt Date: 20040102
  Transmission Date: 20041129
  Serious: No
  Sender: FDA-Public Use
  Company Number: WAES 0401USA00587

PATIENT
  Age: 63 Year
  Sex: Male

DRUGS (7)
  1. ZETIA [Suspect]
     Indication: DYSLIPIDAEMIA
     Dosage: 10 MG/DAILY/PO
     Route: 048
  2. AVANDIA [Concomitant]
  3. GLUCOPHAGE [Concomitant]
  4. GLUCOTROL XL [Concomitant]
  5. PRINIVIL [Concomitant]
  6. ASPIRIN [Concomitant]
  7. QUININE [Concomitant]

REACTIONS (4)
  - ABDOMINAL DISCOMFORT [None]
  - CANDIDIASIS [None]
  - DYSGEUSIA [None]
  - GLOSSITIS [None]
